FAERS Safety Report 25953294 (Version 2)
Quarter: 2025Q4

REPORT INFORMATION
  Report Type: Spontaneous
  Country: JP (occurrence: JP)
  Receive Date: 20251023
  Receipt Date: 20251117
  Transmission Date: 20260117
  Serious: Yes (Other)
  Sender: PFIZER
  Company Number: JP-PFIZER INC-PV202500123721

PATIENT
  Age: 77 Year

DRUGS (2)
  1. ELREXFIO [Suspect]
     Active Substance: ELRANATAMAB-BCMM
     Indication: Plasma cell myeloma refractory
     Dosage: 12 MG
     Dates: start: 2024
  2. ELREXFIO [Suspect]
     Active Substance: ELRANATAMAB-BCMM
     Dosage: 32 MG

REACTIONS (9)
  - Cytokine release syndrome [Unknown]
  - Pyelonephritis [Unknown]
  - Hydronephrosis [Unknown]
  - Compression fracture [Unknown]
  - Hypogammaglobulinaemia [Unknown]
  - Pneumonia [Unknown]
  - Haematuria [Unknown]
  - COVID-19 [Unknown]
  - Urinary tract infection [Unknown]
